FAERS Safety Report 5361352-1 (Version None)
Quarter: 2007Q2

REPORT INFORMATION
  Report Type: 
  Country: None (occurrence: None)
  Receive Date: 20070612
  Receipt Date: 20070531
  Transmission Date: 20071010
  Serious: Yes (Hospitalization)
  Sender: FDA-Public Use
  Company Number: 060003L07JPN

PATIENT
  Age: 27 Year
  Sex: Female

DRUGS (2)
  1. CLOMIPHENE CITRATE (CLOMIPHENE CITRATE) [Suspect]
     Indication: IN VITRO FERTILISATION
  2. MENOTROPINS [Suspect]
     Indication: IN VITRO FERTILISATION

REACTIONS (3)
  - ABORTION SPONTANEOUS [None]
  - DRUG EXPOSURE DURING PREGNANCY [None]
  - OVARIAN HYPERSTIMULATION SYNDROME [None]
